FAERS Safety Report 24934388 (Version 2)
Quarter: 2025Q1

REPORT INFORMATION
  Report Type: Report from Study
  Country: EG (occurrence: EG)
  Receive Date: 20250206
  Receipt Date: 20250319
  Transmission Date: 20250409
  Serious: Yes (Hospitalization, Other)
  Sender: NOVO NORDISK
  Company Number: EG-NOVOPROD-1364066

PATIENT
  Age: 697 Month
  Sex: Female

DRUGS (6)
  1. EGYPRO [Concomitant]
     Indication: Hypertension
     Dosage: 5 MG, QD(1 TAB AT NIGHT)
     Route: 048
  2. ESMORAP [Concomitant]
     Indication: Oesophageal stenosis
     Route: 048
  3. EZAPRIL [Concomitant]
     Indication: Hypertension
     Dosage: 10 MG, QD(1 TAB BEFORE BREAKFAST)
     Route: 048
  4. BENFOTIAMINE\CYANOCOBALAMIN\PYRIDOXINE HYDROCHLORIDE [Concomitant]
     Active Substance: BENFOTIAMINE\CYANOCOBALAMIN\PYRIDOXINE HYDROCHLORIDE
     Indication: Neurotoxicity
     Route: 048
  5. ACTRAPID [Suspect]
     Active Substance: INSULIN HUMAN
     Indication: Diabetes mellitus
     Dosage: 20 IU, QD(10U AT MORNING AND 10U AT NIGHT)
     Route: 058
  6. PANTOPRAZOLE SODIUM [Concomitant]
     Active Substance: PANTOPRAZOLE SODIUM
     Indication: Oesophageal stenosis
     Route: 048

REACTIONS (6)
  - Diabetic ketoacidosis [Not Recovered/Not Resolved]
  - Dizziness [Unknown]
  - Hyperglycaemia [Unknown]
  - Incorrect dose administered by device [Unknown]
  - Device issue [Unknown]
  - Wrong technique in product usage process [Unknown]
